FAERS Safety Report 6808328-2 (Version None)
Quarter: 2010Q2

REPORT INFORMATION
  Report Type: 
  Country: None (occurrence: None)
  Receive Date: 20100629
  Receipt Date: 20090616
  Transmission Date: 20101027
  Serious: No
  Sender: FDA-Public Use
  Company Number: US-PFIZER INC-2009208132

PATIENT
  Sex: Male
  Weight: 93 kg

DRUGS (4)
  1. VIAGRA [Suspect]
     Indication: ERECTILE DYSFUNCTION
     Route: 048
  2. CIALIS [Suspect]
     Indication: ERECTILE DYSFUNCTION
     Dates: end: 20080101
  3. WARFARIN [Concomitant]
     Dosage: UNK
  4. LOVASTATIN [Concomitant]

REACTIONS (1)
  - DRUG INEFFECTIVE [None]
